FAERS Safety Report 12210260 (Version 1)
Quarter: 2016Q1

REPORT INFORMATION
  Report Type: Spontaneous
  Country: US (occurrence: None)
  Receive Date: 20160324
  Receipt Date: 20160324
  Transmission Date: 20160526
  Serious: Yes (Disabling)
  Sender: FDA-Public Use
  Company Number: None

PATIENT
  Age: 54 Year
  Sex: Female
  Weight: 103.42 kg

DRUGS (4)
  1. LANTUS [Concomitant]
     Active Substance: INSULIN GLARGINE
  2. LEXAPRO [Concomitant]
     Active Substance: ESCITALOPRAM OXALATE
  3. TUMS [Concomitant]
     Active Substance: CALCIUM CARBONATE
  4. TRULICITY [Suspect]
     Active Substance: DULAGLUTIDE
     Indication: DIABETES MELLITUS
     Dosage: 1 INJECTION ONCE A WEEK ONCE A WEEK INJECTED INTO STOMACH
     Dates: start: 20160215, end: 20160301

REACTIONS (5)
  - Dizziness [None]
  - Abdominal pain [None]
  - Nausea [None]
  - Weight decreased [None]
  - Pancreatic pseudocyst [None]

NARRATIVE: CASE EVENT DATE: 20160210
